FAERS Safety Report 7151520-0 (Version None)
Quarter: 2010Q4

REPORT INFORMATION
  Report Type: 
  Country: None (occurrence: None)
  Receive Date: 20101210
  Receipt Date: 20101207
  Transmission Date: 20110411
  Serious: Yes (Other)
  Sender: FDA-Public Use
  Company Number: PE-PFIZER INC-2010156889

PATIENT
  Age: 65 Year
  Sex: Female

DRUGS (2)
  1. DETRUSITOL [Suspect]
     Indication: HYPERTONIC BLADDER
     Dosage: 2 MG, 1X/DAY
     Route: 048
     Dates: start: 20101118, end: 20101118
  2. ENALAPRIL [Concomitant]
     Indication: HYPERTENSION

REACTIONS (3)
  - DRUG HYPERSENSITIVITY [None]
  - DRY MOUTH [None]
  - PALMAR ERYTHEMA [None]
